FAERS Safety Report 16276002 (Version 1)
Quarter: 2019Q2

REPORT INFORMATION
  Report Type: Spontaneous
  Country: US (occurrence: US)
  Receive Date: 20190401
  Receipt Date: 20190401
  Transmission Date: 20190711
  Serious: No
  Sender: FDA-Public Use
  Company Number: None

PATIENT
  Age: 56 Year
  Sex: Female

DRUGS (1)
  1. BOTOX TOXIN TYPE A [Suspect]
     Active Substance: ONABOTULINUMTOXINA
     Indication: TORTICOLLIS
     Dosage: ?          OTHER FREQUENCY:90 DAYS ;?
     Route: 030
     Dates: start: 201709, end: 20190102

REACTIONS (1)
  - Rash [None]

NARRATIVE: CASE EVENT DATE: 20190102
